FAERS Safety Report 12549950 (Version 4)
Quarter: 2016Q3

REPORT INFORMATION
  Report Type: Report from Study
  Country: US (occurrence: US)
  Receive Date: 20160712
  Receipt Date: 20160913
  Transmission Date: 20161109
  Serious: Yes (Hospitalization, Other)
  Sender: FDA-Public Use
  Company Number: US-BAYER-2016-126384

PATIENT
  Age: 85 Year
  Sex: Male
  Weight: 73.47 kg

DRUGS (4)
  1. ADEMPAS [Suspect]
     Active Substance: RIOCIGUAT
     Indication: PULMONARY HYPERTENSION
     Dosage: 1.5 MG, TID
     Route: 048
  2. ADEMPAS [Suspect]
     Active Substance: RIOCIGUAT
     Indication: PULMONARY HYPERTENSION
     Dosage: UNK
     Dates: start: 20141118, end: 201606
  3. ADEMPAS [Suspect]
     Active Substance: RIOCIGUAT
     Indication: PULMONARY HYPERTENSION
     Dosage: 0.5 MG
     Route: 048
  4. COUMADIN [Suspect]
     Active Substance: WARFARIN SODIUM

REACTIONS (10)
  - Joint swelling [Unknown]
  - Haematochezia [None]
  - Haematochezia [Recovering/Resolving]
  - Rectal haemorrhage [None]
  - Clostridium difficile colitis [None]
  - International normalised ratio increased [None]
  - Peripheral swelling [Unknown]
  - Hospitalisation [None]
  - Haemorrhage [None]
  - Rectal haemorrhage [None]

NARRATIVE: CASE EVENT DATE: 201605
